FAERS Safety Report 5173617-7 (Version None)
Quarter: 2006Q4

REPORT INFORMATION
  Report Type: 
  Country: None (occurrence: None)
  Receive Date: 20061206
  Receipt Date: 20061130
  Transmission Date: 20070319
  Serious: Yes (Other)
  Sender: FDA-Public Use
  Company Number: 235161K05USA

PATIENT
  Age: 39 Year
  Sex: Female

DRUGS (1)
  1. REBIF [Suspect]
     Indication: MULTIPLE SCLEROSIS
     Dosage: 44 MCG, 3 IN 1 WEEKS, SUBCUTANEOUS
     Route: 058
     Dates: start: 20050905, end: 20060901

REACTIONS (4)
  - IRITIC MELANOMA [None]
  - PUPILS UNEQUAL [None]
  - RASH GENERALISED [None]
  - REFUSAL OF TREATMENT BY PATIENT [None]
